FAERS Safety Report 14695582 (Version 1)
Quarter: 2018Q1

REPORT INFORMATION
  Report Type: Spontaneous
  Country: US (occurrence: US)
  Receive Date: 20180328
  Receipt Date: 20180328
  Transmission Date: 20180509
  Serious: Yes (Hospitalization, Disabling)
  Sender: FDA-Public Use
  Company Number: None

PATIENT
  Age: 59 Year
  Sex: Female
  Weight: 63.9 kg

DRUGS (14)
  1. LEVAQUIN [Suspect]
     Active Substance: LEVOFLOXACIN
     Indication: CYSTITIS
     Dosage: ?          QUANTITY:1 TABLET(S);?
     Route: 048
  2. OMEGAGENICS [Concomitant]
  3. FISH OIL [Concomitant]
     Active Substance: FISH OIL
  4. SUPPLEMENTS [Concomitant]
     Active Substance: UNSPECIFIED INGREDIENT
  5. ULTRA POTENT C [Concomitant]
  6. COENZYME 100 [Concomitant]
  7. PHYTO MULTI [Concomitant]
  8. CALCIUM [Concomitant]
     Active Substance: CALCIUM
  9. MAGNESIUM [Concomitant]
     Active Substance: MAGNESIUM
  10. LIGAGENIX [Concomitant]
  11. CIPROFLOXACIN. [Suspect]
     Active Substance: CIPROFLOXACIN
     Indication: CYSTITIS
     Dosage: ?          QUANTITY:1 TABLET(S);?
     Route: 048
  12. INFLAVANOID INTENSITY [Concomitant]
  13. PROBIOTIC [Concomitant]
     Active Substance: PROBIOTICS NOS
  14. GLYCOGENICS B-COMPLEX [Concomitant]

REACTIONS (8)
  - Anxiety [None]
  - Immune system disorder [None]
  - Alopecia [None]
  - Muscle atrophy [None]
  - Pain [None]
  - Osteoporosis [None]
  - Emotional distress [None]
  - Tendon rupture [None]

NARRATIVE: CASE EVENT DATE: 20060501
